FAERS Safety Report 6637053-6 (Version None)
Quarter: 2010Q1

REPORT INFORMATION
  Report Type: 
  Country: None (occurrence: None)
  Receive Date: 20100316
  Receipt Date: 20100308
  Transmission Date: 20100710
  Serious: Yes (Hospitalization)
  Sender: FDA-Public Use
  Company Number: JP-ABBOTT-09P-087-0583801-00

PATIENT
  Sex: Female
  Weight: 54 kg

DRUGS (13)
  1. HUMIRA [Suspect]
     Indication: RHEUMATOID ARTHRITIS
     Route: 058
     Dates: start: 20090512, end: 20090713
  2. HUMIRA [Suspect]
     Route: 058
     Dates: start: 20090728, end: 20090924
  3. BUCILLAMINE [Concomitant]
     Indication: RHEUMATOID ARTHRITIS
     Dosage: 100 MG DAILY
  4. SALAZOSULFAPYRIDINE [Concomitant]
     Indication: RHEUMATOID ARTHRITIS
     Dosage: 1000 MG DAILY
  5. PREDNISOLONE [Concomitant]
     Indication: RHEUMATOID ARTHRITIS
     Dosage: 5 MG DAILY
  6. AMLODIPINE BESYLATE [Concomitant]
     Indication: DRUG USE FOR UNKNOWN INDICATION
     Dosage: 5 MG DAILY
  7. ATORVASTATIN CALCIUM [Concomitant]
     Indication: DRUG USE FOR UNKNOWN INDICATION
     Dosage: 5 MG DAILY
  8. MISOPROSTOL [Concomitant]
     Indication: PROPHYLAXIS AGAINST GASTROINTESTINAL ULCER
     Dosage: 600 MCG DAILY
  9. LOXOPROFEN SODIUM [Concomitant]
     Indication: RHEUMATOID ARTHRITIS
     Dosage: 180 MG DAILY
  10. RABEPRAZOLE SODIUM [Concomitant]
     Indication: PROPHYLAXIS AGAINST GASTROINTESTINAL ULCER
     Dosage: 10 MG DAILY
  11. CALCITRIOL [Concomitant]
     Indication: OSTEOPOROSIS PROPHYLAXIS
     Dosage: 0.5 MCG DAILY
  12. ALENDRONATE SODIUM [Concomitant]
     Indication: OSTEOPOROSIS PROPHYLAXIS
     Dosage: 5 MG DAILY
  13. EIZOLAM [Concomitant]
     Indication: INSOMNIA
     Dosage: 0.5 MG DAILY

REACTIONS (3)
  - ARTHRALGIA [None]
  - DRUG EFFECT DECREASED [None]
  - PYREXIA [None]
